FAERS Safety Report 24614877 (Version 1)
Quarter: 2024Q4

REPORT INFORMATION
  Report Type: Spontaneous
  Country: US (occurrence: US)
  Receive Date: 20241113
  Receipt Date: 20241113
  Transmission Date: 20250115
  Serious: Yes (Hospitalization)
  Sender: JOHNSON AND JOHNSON
  Company Number: US-JNJFOC-20241120267

PATIENT
  Age: 57 Year
  Sex: Male

DRUGS (1)
  1. BALVERSA [Suspect]
     Active Substance: ERDAFITINIB
     Indication: Metastatic carcinoma of the bladder
     Dosage: SIX MONTHS
     Route: 065

REACTIONS (1)
  - Chronic cutaneous lupus erythematosus [Recovering/Resolving]
